FAERS Safety Report 9268363 (Version 1)
Quarter: 2013Q2

REPORT INFORMATION
  Report Type: Spontaneous
  Country: DK (occurrence: CH)
  Receive Date: 20130502
  Receipt Date: 20130502
  Transmission Date: 20140414
  Serious: Yes (Death)
  Sender: FDA-Public Use
  Company Number: CH-FRI-1000044856

PATIENT
  Sex: Female

DRUGS (7)
  1. CITALOPRAM [Suspect]
     Dosage: 20 MG
     Route: 048
     Dates: start: 2011
  2. SINTROM [Suspect]
     Indication: EMBOLISM VENOUS
     Dosage: 1 MG
     Route: 048
     Dates: start: 1998
  3. SINTROM [Suspect]
     Indication: VENOUS THROMBOSIS
  4. ALLOPUR [Concomitant]
     Dosage: 300 MG
     Route: 048
  5. COAPROVEL [Concomitant]
     Dosage: 2 TIMES 150 MG/12.5 MG
     Route: 048
  6. CRESTOR [Concomitant]
     Dosage: 10 MG
     Route: 048
  7. TORASIS [Concomitant]
     Dosage: 10 MG
     Route: 048

REACTIONS (2)
  - Cerebral haemorrhage [Fatal]
  - Coma [Fatal]
